FAERS Safety Report 10569737 (Version 1)
Quarter: 2014Q4

REPORT INFORMATION
  Report Type: Report from Study
  Country: GB (occurrence: GB)
  Receive Date: 20141107
  Receipt Date: 20141107
  Transmission Date: 20150529
  Serious: Yes (Disabling)
  Sender: FDA-Public Use
  Company Number: GB-ACCORD-026854

PATIENT
  Age: 51 Year
  Sex: Male

DRUGS (1)
  1. SIMVASTATIN. [Suspect]
     Active Substance: SIMVASTATIN
     Indication: BLOOD CHOLESTEROL INCREASED
     Dosage: UNK
     Route: 048

REACTIONS (11)
  - Abdominal distension [Unknown]
  - Insomnia [Unknown]
  - Dizziness [Unknown]
  - Fatigue [Unknown]
  - Social avoidant behaviour [Unknown]
  - Flatulence [Unknown]
  - Impaired work ability [Unknown]
  - Psychiatric symptom [Unknown]
  - Quality of life decreased [Unknown]
  - Frustration [Unknown]
  - Activities of daily living impaired [Unknown]
